FAERS Safety Report 7775715-8 (Version None)
Quarter: 2011Q3

REPORT INFORMATION
  Report Type: 
  Country: None (occurrence: None)
  Receive Date: 20110923
  Receipt Date: 20110914
  Transmission Date: 20111222
  Serious: Yes (Hospitalization)
  Sender: FDA-Public Use
  Company Number: FR-GLAXOSMITHKLINE-B0744407A

PATIENT
  Age: 60 Year
  Sex: Female
  Weight: 83 kg

DRUGS (3)
  1. ZOFRAN [Suspect]
     Indication: PROCEDURAL NAUSEA
     Dosage: 1INJ PER DAY
     Route: 042
     Dates: start: 20110809, end: 20110810
  2. MORPHINE [Suspect]
     Indication: PROCEDURAL PAIN
     Dosage: 1INJ PER DAY
     Route: 058
     Dates: start: 20110809, end: 20110810
  3. NEXIUM [Suspect]
     Dosage: 40MG PER DAY
     Route: 042
     Dates: start: 20110809, end: 20110815

REACTIONS (4)
  - DRUG INTERACTION [None]
  - FLATULENCE [None]
  - ILEUS PARALYTIC [None]
  - VOMITING [None]
